FAERS Safety Report 17723576 (Version 2)
Quarter: 2020Q2

REPORT INFORMATION
  Report Type: Report from Study
  Country: IT (occurrence: IT)
  Receive Date: 20200429
  Receipt Date: 20200512
  Transmission Date: 20200714
  Serious: Yes (Hospitalization)
  Sender: FDA-Public Use
  Company Number: IT-BAUSCH-BL-2020-012164

PATIENT
  Age: 87 Year
  Sex: Female

DRUGS (3)
  1. LORAZEPAM. [Suspect]
     Active Substance: LORAZEPAM
     Indication: INTENTIONAL SELF-INJURY
     Dosage: TOTAL
     Route: 048
     Dates: start: 20200408, end: 20200408
  2. SIMVASTATIN. [Suspect]
     Active Substance: SIMVASTATIN
     Indication: INTENTIONAL SELF-INJURY
     Route: 048
     Dates: start: 20200408, end: 20200408
  3. ELIQUIS [Suspect]
     Active Substance: APIXABAN
     Indication: INTENTIONAL SELF-INJURY
     Dosage: TOTAL
     Route: 048
     Dates: start: 20200408, end: 20200408

REACTIONS (3)
  - Drug abuse [Unknown]
  - Intentional self-injury [Unknown]
  - Palpitations [Unknown]

NARRATIVE: CASE EVENT DATE: 20200408
